FAERS Safety Report 20554437 (Version 1)
Quarter: 2022Q1

REPORT INFORMATION
  Report Type: Spontaneous
  Country: US (occurrence: US)
  Receive Date: 20220304
  Receipt Date: 20220304
  Transmission Date: 20220423
  Serious: Yes (Other)
  Sender: FDA-Public Use
  Company Number: US-ORGANON-O2203USA000184

PATIENT
  Age: 36 Year
  Sex: Female

DRUGS (1)
  1. NUVARING [Suspect]
     Active Substance: ETHINYL ESTRADIOL\ETONOGESTREL
     Dosage: 1 DOSAGE FORM (RING) (DOSE REPORTED AS 0.015/0.12 MG)
     Route: 067
     Dates: end: 20220227

REACTIONS (2)
  - Device expulsion [Unknown]
  - Device breakage [Unknown]

NARRATIVE: CASE EVENT DATE: 20220227
